FAERS Safety Report 7072522-9 (Version None)
Quarter: 2010Q4

REPORT INFORMATION
  Report Type: 
  Country: None (occurrence: None)
  Receive Date: 20101029
  Receipt Date: 20100205
  Transmission Date: 20110411
  Serious: No
  Sender: FDA-Public Use
  Company Number: A0843246A

PATIENT
  Sex: Female

DRUGS (9)
  1. ADVAIR DISKUS 100/50 [Suspect]
     Dosage: 1PUFF TWICE PER DAY
     Route: 055
     Dates: start: 20091130
  2. ACIPHEX [Concomitant]
  3. MOBIC [Concomitant]
  4. PROZAC [Concomitant]
  5. ASPIRIN [Concomitant]
  6. JANUVIA [Concomitant]
  7. VYTORIN [Concomitant]
  8. NASAL SPRAY (UNSPECIFIED) [Concomitant]
  9. UNKNOWN MEDICATION [Concomitant]

REACTIONS (2)
  - BLOOD GLUCOSE INCREASED [None]
  - DYSPNOEA [None]
